FAERS Safety Report 7467885-6 (Version None)
Quarter: 2011Q2

REPORT INFORMATION
  Report Type: 
  Country: None (occurrence: None)
  Receive Date: 20110509
  Receipt Date: 20110214
  Transmission Date: 20111010
  Serious: No
  Sender: FDA-Public Use
  Company Number: US-ALEXION-A201100188

PATIENT
  Sex: Female

DRUGS (2)
  1. SOLIRIS [Suspect]
     Dosage: 900 MG, Q12D
     Route: 042
     Dates: start: 20100927
  2. SOLIRIS [Suspect]
     Indication: PAROXYSMAL NOCTURNAL HAEMOGLOBINURIA
     Dosage: UNK
     Route: 042
     Dates: start: 20100721

REACTIONS (9)
  - SINUSITIS [None]
  - COUGH [None]
  - PYREXIA [None]
  - BRONCHITIS [None]
  - NASOPHARYNGITIS [None]
  - NASAL CONGESTION [None]
  - CHILLS [None]
  - GAIT DISTURBANCE [None]
  - DIZZINESS [None]
